FAERS Safety Report 5207641-2 (Version None)
Quarter: 2007Q1

REPORT INFORMATION
  Report Type: 
  Country: None (occurrence: None)
  Receive Date: 20070112
  Receipt Date: 20070103
  Transmission Date: 20070707
  Serious: Yes (Other)
  Sender: FDA-Public Use
  Company Number: US-PFIZER INC-2006140299

PATIENT
  Sex: Female

DRUGS (1)
  1. ZOLOFT [Suspect]

REACTIONS (6)
  - CHILD ABUSE [None]
  - COGNITIVE DISORDER [None]
  - FEELING ABNORMAL [None]
  - HOMICIDE [None]
  - INSOMNIA [None]
  - LOSS OF CONSCIOUSNESS [None]
